FAERS Safety Report 17148971 (Version 1)
Quarter: 2019Q4

REPORT INFORMATION
  Report Type: Report from Study
  Country: CN (occurrence: CN)
  Receive Date: 20191213
  Receipt Date: 20191213
  Transmission Date: 20200122
  Serious: Yes (Other)
  Sender: FDA-Public Use
  Company Number: CN-ROCHE-2497690

PATIENT
  Age: 44 Year
  Sex: Female

DRUGS (1)
  1. RITUXIMAB. [Suspect]
     Active Substance: RITUXIMAB
     Indication: SYSTEMIC LUPUS ERYTHEMATOSUS
     Dosage: TOTAL OF 4 TIMES (DAYS 1, 8, 15, AND 22)
     Route: 041

REACTIONS (5)
  - Pulmonary artery thrombosis [Recovered/Resolved]
  - Tuberculosis of central nervous system [Recovered/Resolved]
  - Intentional product use issue [Unknown]
  - Off label use [Unknown]
  - Pulmonary tuberculosis [Recovered/Resolved]
